FAERS Safety Report 24218447 (Version 3)
Quarter: 2024Q3

REPORT INFORMATION
  Report Type: Spontaneous
  Country: MX (occurrence: MX)
  Receive Date: 20240816
  Receipt Date: 20240928
  Transmission Date: 20241017
  Serious: Yes (Other)
  Sender: TAKEDA
  Company Number: MX-teijin-202403117_FE_P_1

PATIENT
  Age: 71 Year
  Sex: Female

DRUGS (2)
  1. FEBUXOSTAT [Suspect]
     Active Substance: FEBUXOSTAT
     Indication: Blood uric acid increased
     Dosage: 80 MILLIGRAM, QD
     Route: 048
     Dates: start: 202408
  2. FEBUXOSTAT [Suspect]
     Active Substance: FEBUXOSTAT
     Dosage: 40 MILLIGRAM, QD
     Route: 048
     Dates: start: 202408

REACTIONS (4)
  - Herpes zoster disseminated [Recovered/Resolved with Sequelae]
  - Expired product administered [Unknown]
  - Post herpetic neuralgia [Not Recovered/Not Resolved]
  - Oral herpes [Recovered/Resolved]

NARRATIVE: CASE EVENT DATE: 20240801
